FAERS Safety Report 8975014 (Version 1)
Quarter: 2012Q4

REPORT INFORMATION
  Report Type: 
  Country: ES (occurrence: ES)
  Receive Date: 20121220
  Receipt Date: 20121220
  Transmission Date: 20130627
  Serious: Yes (Other)
  Sender: FDA-Public Use
  Company Number: ES-ABBOTT-12P-144-1021428-00

PATIENT
  Age: 45 Year
  Sex: Male

DRUGS (1)
  1. HUMIRA [Suspect]
     Indication: RHEUMATOID ARTHRITIS
     Route: 058
     Dates: start: 20050912, end: 20120316

REACTIONS (3)
  - Subclavian vein thrombosis [Recovered/Resolved with Sequelae]
  - Axillary vein thrombosis [Recovered/Resolved with Sequelae]
  - Antiphospholipid syndrome [Unknown]
